FAERS Safety Report 5365550-2 (Version None)
Quarter: 2007Q2

REPORT INFORMATION
  Report Type: 
  Country: None (occurrence: None)
  Receive Date: 20070621
  Receipt Date: 20070614
  Transmission Date: 20071010
  Serious: Yes (Hospitalization)
  Sender: FDA-Public Use
  Company Number: B0474415A

PATIENT
  Sex: Female
  Weight: 58 kg

DRUGS (1)
  1. TOPOTECAN [Suspect]
     Indication: OVARIAN CANCER
     Dosage: 4MG WEEKLY
     Route: 042
     Dates: start: 20061213, end: 20061227

REACTIONS (5)
  - ANAEMIA [None]
  - DIZZINESS [None]
  - DRUG INEFFECTIVE [None]
  - GENERAL PHYSICAL HEALTH DETERIORATION [None]
  - VESTIBULAR DISORDER [None]
